FAERS Safety Report 9648500 (Version 1)
Quarter: 2013Q4

REPORT INFORMATION
  Report Type: Spontaneous
  Country: US (occurrence: None)
  Receive Date: 20131024
  Receipt Date: 20131024
  Transmission Date: 20140711
  Serious: Yes (Other)
  Sender: FDA-Public Use
  Company Number: ACO_38254_2013

PATIENT
  Age: 52 Year
  Sex: Male

DRUGS (6)
  1. AMPYRA [Suspect]
     Indication: MULTIPLE SCLEROSIS
     Route: 048
     Dates: start: 201306, end: 201308
  2. BACLOFEN ( BACLOFEN) [Concomitant]
  3. VERAPAMIL( VERAPAMIL  HYDROCHLORIDE) [Concomitant]
  4. DICLOFENAC ( DICLOFENAC DIETHYLAMINE) [Concomitant]
  5. TRAMADOL ( TRAMADOL HYDROCHLORIDE) [Concomitant]
  6. PERCOCET ( OXYCODONE HYDROCHLORIDE, OXYCODONE TEREPHTHALATE, PARACETAMOL) [Concomitant]

REACTIONS (3)
  - Convulsion [None]
  - Tremor [None]
  - Fatigue [None]
